FAERS Safety Report 8922421 (Version 2)
Quarter: 2012Q4

REPORT INFORMATION
  Report Type: 
  Country: GR (occurrence: GR)
  Receive Date: 20121123
  Receipt Date: 20121130
  Transmission Date: 20130627
  Serious: Yes (Death, Other)
  Sender: FDA-Public Use
  Company Number: GR-JNJFOC-20121109615

PATIENT
  Age: 55 Year
  Sex: Male

DRUGS (9)
  1. REMICADE [Suspect]
     Indication: VASCULITIS
     Route: 042
  2. REMICADE [Suspect]
     Indication: RHEUMATOID ARTHRITIS
     Route: 042
  3. OMACOR [Concomitant]
     Route: 065
  4. METHOTREXATE [Concomitant]
     Route: 065
  5. CORTISONE [Concomitant]
     Route: 065
  6. APROVEL [Concomitant]
     Route: 065
  7. AFLEN [Concomitant]
     Route: 065
  8. CALCIUM [Concomitant]
     Route: 065
  9. FILICINE [Concomitant]
     Route: 065

REACTIONS (2)
  - Pulmonary embolism [Fatal]
  - Histoplasmosis [Unknown]
